FAERS Safety Report 6094429-6 (Version None)
Quarter: 2009Q1

REPORT INFORMATION
  Report Type: 
  Country: None (occurrence: None)
  Receive Date: 20090226
  Receipt Date: 20090216
  Transmission Date: 20090719
  Serious: Yes (Other)
  Sender: FDA-Public Use
  Company Number: US-SANOFI-SYNTHELABO-A03200900683

PATIENT
  Age: 75 Year
  Sex: Male

DRUGS (1)
  1. AMBIEN CR [Suspect]
     Indication: INSOMNIA
     Route: 048
     Dates: start: 20080601

REACTIONS (3)
  - ABNORMAL BEHAVIOUR [None]
  - FACIAL PALSY [None]
  - HALLUCINATION [None]
